FAERS Safety Report 5474526-6 (Version None)
Quarter: 2007Q4

REPORT INFORMATION
  Report Type: 
  Country: None (occurrence: None)
  Receive Date: 20071002
  Receipt Date: 20070924
  Transmission Date: 20080405
  Serious: Yes (Hospitalization, Other)
  Sender: FDA-Public Use
  Company Number: US-ELI_LILLY_AND_COMPANY-US200709006459

PATIENT
  Age: 38 Year
  Sex: Female

DRUGS (3)
  1. ZYPREXA [Suspect]
     Dosage: 30 MG, UNK
  2. ZYPREXA [Suspect]
     Dosage: UNK, UNKNOWN
  3. GEODON [Concomitant]

REACTIONS (3)
  - MENTAL DISORDER [None]
  - OVERDOSE [None]
  - WEIGHT INCREASED [None]
